FAERS Safety Report 7816293-4 (Version None)
Quarter: 2011Q4

REPORT INFORMATION
  Report Type: 
  Country: None (occurrence: None)
  Receive Date: 20111016
  Receipt Date: 20111003
  Transmission Date: 20120403
  Serious: Yes (Other)
  Sender: FDA-Public Use
  Company Number: DE-MYLANLABS-2011S1020870

PATIENT
  Age: 70 Year
  Sex: Male
  Weight: 80 kg

DRUGS (1)
  1. REMIFENTANIL [Suspect]
     Indication: ACCIDENTAL OVERDOSE
     Dosage: 1561 MICROGRAMS OVER APPROXIMATELY 5 MINUTES (ROUTE: INFUSION PUMP)

REACTIONS (6)
  - LOSS OF CONSCIOUSNESS [None]
  - MUSCLE RIGIDITY [None]
  - APNOEA [None]
  - SEIZURE LIKE PHENOMENA [None]
  - ACCIDENTAL OVERDOSE [None]
  - DEVICE INFUSION ISSUE [None]
